FAERS Safety Report 8924003 (Version 2)
Quarter: 2012Q4

REPORT INFORMATION
  Report Type: 
  Country: US (occurrence: US)
  Receive Date: 20121126
  Receipt Date: 20121212
  Transmission Date: 20130627
  Serious: No
  Sender: FDA-Public Use
  Company Number: US-VERTEX PHARMACEUTICAL INC.-2012-024483

PATIENT
  Age: 51 Year
  Sex: Female
  Weight: 79 kg

DRUGS (10)
  1. INCIVEK [Suspect]
     Indication: HEPATITIS C
     Dosage: 750 mg, tid
     Route: 048
     Dates: start: 20120917
  2. COPEGUS [Suspect]
     Indication: HEPATITIS C
     Dosage: 1200 mg, qd
     Route: 048
     Dates: start: 20120917
  3. COPEGUS [Suspect]
     Dosage: 800 mg, qd
     Route: 048
     Dates: start: 20121003
  4. COPEGUS [Suspect]
     Dosage: 600 mg, qd
     Route: 048
     Dates: start: 20121010
  5. PEGASYS [Suspect]
     Indication: HEPATITIS C
     Dosage: 180 ?g, qw
     Route: 058
     Dates: start: 20120917, end: 20121010
  6. PEGASYS [Suspect]
     Dosage: 135 ?g, qw
     Route: 058
     Dates: start: 20121010
  7. BACLOFEN [Concomitant]
  8. CETRIZINE [Concomitant]
  9. GABAPENTIN [Concomitant]
  10. OMEPRAZOLE [Concomitant]

REACTIONS (12)
  - Depression [Not Recovered/Not Resolved]
  - White blood cell count decreased [Not Recovered/Not Resolved]
  - Photosensitivity reaction [Not Recovered/Not Resolved]
  - Drug dose omission [Not Recovered/Not Resolved]
  - Headache [Not Recovered/Not Resolved]
  - Pyrexia [Not Recovered/Not Resolved]
  - Productive cough [Not Recovered/Not Resolved]
  - Dry mouth [Not Recovered/Not Resolved]
  - Stomatitis [Not Recovered/Not Resolved]
  - Anaemia [Not Recovered/Not Resolved]
  - Nausea [Not Recovered/Not Resolved]
  - Vomiting [Not Recovered/Not Resolved]
